FAERS Safety Report 5188102-6 (Version None)
Quarter: 2006Q4

REPORT INFORMATION
  Report Type: 
  Country: None (occurrence: None)
  Receive Date: 20061221
  Receipt Date: 20061213
  Transmission Date: 20070319
  Serious: Yes (Other)
  Sender: FDA-Public Use
  Company Number: JP-ELI_LILLY_AND_COMPANY-JP200612002877

PATIENT
  Age: 66 Year
  Sex: Female
  Weight: 46.4 kg

DRUGS (3)
  1. RALOXIFENE HCL [Suspect]
     Indication: OSTEOPOROSIS POSTMENOPAUSAL
     Dosage: 60 MG, DAILY (1/D)
     Route: 048
     Dates: start: 20051109, end: 20060101
  2. TOKISYAKUYAKUSAN [Concomitant]
     Indication: MENOPAUSAL SYMPTOMS
     Dosage: 6 G, DAILY (1/D)
     Route: 048
     Dates: start: 20051109, end: 20060131
  3. EPADEL [Concomitant]
     Indication: HYPERLIPIDAEMIA
     Dosage: 500 MG, DAILY (1/D)
     Route: 048
     Dates: start: 20051109, end: 20060131

REACTIONS (2)
  - BREAST CANCER [None]
  - BREAST CANCER FEMALE [None]
